FAERS Safety Report 6438595-9 (Version None)
Quarter: 2009Q4

REPORT INFORMATION
  Report Type: 
  Country: None (occurrence: None)
  Receive Date: 20091110
  Receipt Date: 20091026
  Transmission Date: 20100525
  Serious: Yes (Death)
  Sender: FDA-Public Use
  Company Number: 2009AC000127

PATIENT
  Age: 75 Year
  Sex: Male

DRUGS (10)
  1. DIGOXIN [Suspect]
     Dosage: 0.25 MG;QD;PO
     Route: 048
  2. ALTACE [Concomitant]
  3. FUROSEMIDE [Concomitant]
  4. CEPHALEXIN [Concomitant]
  5. TRAVATAN [Concomitant]
  6. RAMIPRIL [Concomitant]
  7. QUALAQUIN [Concomitant]
  8. QUININE [Concomitant]
  9. AMOXICILLIN [Concomitant]
  10. ACETAMINOPHEN AND HYDROCODONE BITARTRATE [Concomitant]

REACTIONS (21)
  - ATRIAL FIBRILLATION [None]
  - ATRIAL TACHYCARDIA [None]
  - CARDIAC ARREST [None]
  - CHRONIC OBSTRUCTIVE PULMONARY DISEASE [None]
  - CONDUCTION DISORDER [None]
  - CONGESTIVE CARDIOMYOPATHY [None]
  - ECONOMIC PROBLEM [None]
  - FALL [None]
  - GOUT [None]
  - HEART RATE DECREASED [None]
  - HEART RATE INCREASED [None]
  - INJURY [None]
  - LEFT ATRIAL DILATATION [None]
  - MITRAL VALVE INCOMPETENCE [None]
  - PAIN [None]
  - PRESYNCOPE [None]
  - SOCIAL PROBLEM [None]
  - SYNCOPE [None]
  - TRICUSPID VALVE INCOMPETENCE [None]
  - VENTRICULAR EXTRASYSTOLES [None]
  - VIITH NERVE PARALYSIS [None]
